FAERS Safety Report 7001051-3 (Version None)
Quarter: 2010Q3

REPORT INFORMATION
  Report Type: 
  Country: None (occurrence: None)
  Receive Date: 20100920
  Receipt Date: 20070530
  Transmission Date: 20110219
  Serious: Yes (Other)
  Sender: FDA-Public Use
  Company Number: US-ASTRAZENECA-2006UW11976

PATIENT
  Age: 54 Year
  Sex: Male
  Weight: 123.4 kg

DRUGS (11)
  1. SEROQUEL [Suspect]
     Indication: DEPRESSION
     Route: 048
     Dates: start: 20030101, end: 20061217
  2. SEROQUEL [Suspect]
     Dosage: 25- 300 MG
     Route: 048
     Dates: start: 20040402
  3. ZYPREXA [Suspect]
  4. EFFEXOR [Concomitant]
  5. WELLBUTRIN [Concomitant]
     Dosage: 150-300 MG
     Dates: start: 20040413
  6. NORVASC [Concomitant]
     Dosage: 10-30 MG
     Dates: start: 20040506
  7. TRIAMTERENE AND HYDROCHLOROTHIAZIDE [Concomitant]
     Dosage: 75/50
     Dates: start: 20041027
  8. ZOLOFT [Concomitant]
     Dates: start: 20040402
  9. PREVACID [Concomitant]
     Dates: start: 20040710
  10. LEXAPRO [Concomitant]
     Dosage: 10-20 MG
     Dates: start: 20040817
  11. DIPHENHYDRAMINE HCL [Concomitant]
     Dates: start: 20040102

REACTIONS (5)
  - BLOOD CHOLESTEROL INCREASED [None]
  - DIABETES MELLITUS [None]
  - DIABETIC COMA [None]
  - DIABETIC KETOACIDOSIS [None]
  - INSOMNIA [None]
